FAERS Safety Report 18373116 (Version 2)
Quarter: 2020Q4

REPORT INFORMATION
  Report Type: Report from Study
  Country: US (occurrence: US)
  Receive Date: 20201012
  Receipt Date: 20201125
  Transmission Date: 20210114
  Serious: Yes (Other)
  Sender: FDA-Public Use
  Company Number: NVSC2020US271695

PATIENT
  Sex: Female

DRUGS (1)
  1. COSENTYX [Suspect]
     Active Substance: SECUKINUMAB
     Indication: ANKYLOSING SPONDYLITIS
     Dosage: UNK UNK, QW
     Route: 058

REACTIONS (6)
  - Fatigue [Unknown]
  - Hyperhidrosis [Unknown]
  - Ankylosing spondylitis [Unknown]
  - Pain [Unknown]
  - Feeling hot [Unknown]
  - Skin burning sensation [Unknown]
